FAERS Safety Report 4577387-2 (Version None)
Quarter: 2005Q1

REPORT INFORMATION
  Report Type: 
  Country: None (occurrence: None)
  Receive Date: 20050210
  Receipt Date: 20041019
  Transmission Date: 20050727
  Serious: Yes (Other)
  Sender: FDA-Public Use
  Company Number: DE-GLAXOSMITHKLINE-D0045025A

PATIENT
  Age: 36 Year
  Sex: Female
  Weight: 60 kg

DRUGS (2)
  1. LAMICTAL [Suspect]
     Indication: EPILEPSY
     Dosage: 50MG TWICE PER DAY
     Route: 048
     Dates: start: 20040405, end: 20040830
  2. NEURONTIN [Suspect]
     Indication: EPILEPSY
     Dosage: 800MG THREE TIMES PER DAY
     Route: 048
     Dates: start: 20020101

REACTIONS (5)
  - BLADDER DISORDER [None]
  - BLOOD ALDOSTERONE INCREASED [None]
  - DRUG INTERACTION [None]
  - FACE OEDEMA [None]
  - RESIDUAL URINE VOLUME [None]
